FAERS Safety Report 5962188-0 (Version None)
Quarter: 2008Q4

REPORT INFORMATION
  Report Type: 
  Country: None (occurrence: None)
  Receive Date: 20081121
  Receipt Date: 20081113
  Transmission Date: 20090506
  Serious: Yes (Other)
  Sender: FDA-Public Use
  Company Number: PHEH2008US08894

PATIENT
  Sex: Male

DRUGS (8)
  1. STALEVO 100 [Suspect]
     Indication: PARKINSON'S DISEASE
     Dosage: 150 MG, QID
     Route: 048
     Dates: start: 20080414
  2. STALEVO 100 [Suspect]
     Dosage: 100 MG, QID
     Route: 048
     Dates: start: 20080901
  3. STALEVO 100 [Suspect]
     Dosage: 150 MG, QID
     Route: 048
     Dates: start: 20080927
  4. IBUPROFEN TABLETS [Concomitant]
  5. NORTRIPTYLINE HCL [Concomitant]
     Dosage: 25 MG, UNK
  6. OMEPRAZOLE [Concomitant]
     Dosage: 20 MG, UNK
  7. FENTANYL [Concomitant]
     Dosage: 12 UG, UNK
  8. SEROQUEL [Concomitant]

REACTIONS (9)
  - CONFUSIONAL STATE [None]
  - DRUG DISPENSING ERROR [None]
  - DRUG INEFFECTIVE [None]
  - FEELING ABNORMAL [None]
  - GAIT DISTURBANCE [None]
  - GENERAL PHYSICAL HEALTH DETERIORATION [None]
  - MENTAL DISORDER [None]
  - MOVEMENT DISORDER [None]
  - PARKINSON'S DISEASE [None]
